FAERS Safety Report 9175308 (Version 1)
Quarter: 2013Q1

REPORT INFORMATION
  Report Type: Spontaneous
  Country: CA (occurrence: CA)
  Receive Date: 20130320
  Receipt Date: 20130320
  Transmission Date: 20140127
  Serious: Yes (Hospitalization)
  Sender: FDA-Public Use
  Company Number: CA-PFIZER INC-2013088953

PATIENT
  Age: 64 Year
  Sex: Male

DRUGS (1)
  1. INSPRA [Suspect]
     Dosage: UNK
     Dates: start: 20130206

REACTIONS (2)
  - Cardiac failure [Unknown]
  - Weight increased [Unknown]
